FAERS Safety Report 12630991 (Version 2)
Quarter: 2016Q3

REPORT INFORMATION
  Report Type: Spontaneous
  Country: US (occurrence: US)
  Receive Date: 20160808
  Receipt Date: 20160808
  Transmission Date: 20161109
  Serious: No
  Sender: FDA-Public Use
  Company Number: US-BEH-2015051763

PATIENT
  Age: 56 Year
  Sex: Female
  Weight: 72.6 kg

DRUGS (20)
  1. DIPHENHYDRAMINE. [Concomitant]
     Active Substance: DIPHENHYDRAMINE
  2. SYNTHROID [Concomitant]
     Active Substance: LEVOTHYROXINE SODIUM
  3. VITAMIN D [Concomitant]
     Active Substance: CHOLECALCIFEROL
  4. VITAMIN B12 [Concomitant]
     Active Substance: CYANOCOBALAMIN
  5. VENTOLIN HFA [Concomitant]
     Active Substance: ALBUTEROL SULFATE
  6. VOLTAREN [Concomitant]
     Active Substance: DICLOFENAC SODIUM
  7. EPIPEN [Concomitant]
     Active Substance: EPINEPHRINE
  8. CENTRUM SILVER [Concomitant]
     Active Substance: MINERALS\VITAMINS
  9. LIDODERM [Concomitant]
     Active Substance: LIDOCAINE
     Route: 061
  10. TYLENOL [Concomitant]
     Active Substance: ACETAMINOPHEN
  11. HIZENTRA [Suspect]
     Active Substance: HUMAN IMMUNOGLOBULIN G
     Indication: COMBINED IMMUNODEFICIENCY
     Dosage: 4 SITES EACH THIGH
     Route: 058
     Dates: start: 20150603
  12. LIPITOR [Concomitant]
     Active Substance: ATORVASTATIN CALCIUM
  13. CALTRATE 600+D [Concomitant]
  14. DOXYCYCLINE HYCLATE. [Concomitant]
     Active Substance: DOXYCYCLINE HYCLATE
  15. LYRICA [Concomitant]
     Active Substance: PREGABALIN
  16. PULMICORT TURBUHALER [Concomitant]
     Active Substance: BUDESONIDE
     Route: 055
  17. ZYRTEC [Concomitant]
     Active Substance: CETIRIZINE HYDROCHLORIDE
  18. METAXALONE. [Concomitant]
     Active Substance: METAXALONE
  19. SYNTHROID [Concomitant]
     Active Substance: LEVOTHYROXINE SODIUM
  20. PATADAY [Concomitant]
     Active Substance: OLOPATADINE HYDROCHLORIDE

REACTIONS (2)
  - Infusion site erythema [Unknown]
  - Infusion site rash [Unknown]

NARRATIVE: CASE EVENT DATE: 20150608
